FAERS Safety Report 9984516 (Version 1)
Quarter: 2014Q1

REPORT INFORMATION
  Report Type: Report from Study
  Country: US (occurrence: US)
  Receive Date: 20140307
  Receipt Date: 20140307
  Transmission Date: 20141002
  Serious: No
  Sender: FDA-Public Use
  Company Number: US-ABBVIE-13P-163-1182371-00

PATIENT
  Age: 61 Year
  Sex: Female
  Weight: 61.29 kg

DRUGS (9)
  1. HUMIRA [Suspect]
     Indication: CROHN^S DISEASE
     Dates: start: 20131122, end: 20131122
  2. HUMIRA [Suspect]
     Dates: start: 20131206, end: 20131206
  3. PAXIL [Concomitant]
     Indication: DEPRESSION
  4. ALENDRONATE [Concomitant]
     Indication: OSTEOPOROSIS
  5. MELOXICAM [Concomitant]
     Indication: PAIN
  6. AMLODIPINE [Concomitant]
     Indication: HYPERTENSION
  7. TRAMADOL [Concomitant]
     Indication: ARTHRITIS
  8. CHLORTHALIDONE [Concomitant]
     Indication: HYPERTENSION
  9. GABAPENTIN [Concomitant]
     Indication: MUSCLE SPASMS

REACTIONS (5)
  - Malaise [Not Recovered/Not Resolved]
  - Feeling jittery [Not Recovered/Not Resolved]
  - Abdominal rigidity [Not Recovered/Not Resolved]
  - Vomiting [Recovered/Resolved]
  - Abdominal pain upper [Not Recovered/Not Resolved]
